FAERS Safety Report 4462179-5 (Version None)
Quarter: 2004Q3

REPORT INFORMATION
  Report Type: 
  Country: None (occurrence: None)
  Receive Date: 20040929
  Receipt Date: 20040924
  Transmission Date: 20050211
  Serious: Yes (Death, Hospitalization)
  Sender: FDA-Public Use
  Company Number: PHNU2004DE03331

PATIENT
  Age: 82 Year
  Sex: Female

DRUGS (2)
  1. PRAVIDEL [Suspect]
     Indication: PITUITARY TUMOUR
     Dosage: 30MG/DAY
  2. PRAVIDEL [Suspect]
     Dosage: 2.5MG/DAY

REACTIONS (3)
  - DEPRESSION [None]
  - GASTROINTESTINAL DISORDER [None]
  - UROSEPSIS [None]
